FAERS Safety Report 25520799 (Version 1)
Quarter: 2025Q3

REPORT INFORMATION
  Report Type: Spontaneous
  Country: EU (occurrence: EU)
  Receive Date: 20250705
  Receipt Date: 20250705
  Transmission Date: 20251020
  Serious: Yes (Death, Other)
  Sender: AMGEN
  Company Number: EU-AMGEN-DEUSP2025127173

PATIENT

DRUGS (1)
  1. TRASTUZUMAB [Suspect]
     Active Substance: TRASTUZUMAB
     Indication: Breast cancer
     Route: 065

REACTIONS (17)
  - Nervous system disorder [Fatal]
  - Neoplasm malignant [Fatal]
  - Multiple organ dysfunction syndrome [Fatal]
  - Delirium [Fatal]
  - Septic shock [Fatal]
  - Death [Fatal]
  - Arrhythmia [Fatal]
  - Pneumonia [Fatal]
  - Diverticulitis [Unknown]
  - Metastases to central nervous system [Unknown]
  - Cerebral haemorrhage [Unknown]
  - Radiation necrosis [Unknown]
  - Subdural haematoma [Unknown]
  - Acute respiratory distress syndrome [Unknown]
  - Pneumocephalus [Unknown]
  - Postoperative wound infection [Unknown]
  - Cerebrospinal fistula [Unknown]
